FAERS Safety Report 5579212-X (Version None)
Quarter: 2008Q1

REPORT INFORMATION
  Report Type: 
  Country: None (occurrence: None)
  Receive Date: 20080102
  Receipt Date: 20071228
  Transmission Date: 20080703
  Serious: Yes (Other)
  Sender: FDA-Public Use
  Company Number: B0501257A

PATIENT
  Age: 84 Year
  Sex: Female

DRUGS (10)
  1. CLAMOXYL [Suspect]
     Indication: URINARY TRACT INFECTION
     Dosage: 1G THREE TIMES PER DAY
     Route: 048
     Dates: start: 20071209, end: 20071210
  2. DIHYDAN [Suspect]
     Indication: EPILEPSY
     Route: 048
  3. FLECAINIDE ACETATE [Concomitant]
     Route: 065
  4. ARICEPT [Concomitant]
     Route: 065
  5. COVERSYL [Concomitant]
     Route: 065
  6. PLAVIX [Concomitant]
     Route: 065
  7. NEURONTIN [Concomitant]
     Route: 065
  8. FRACTAL [Concomitant]
     Route: 065
  9. POTASSIUM CHLORIDE [Concomitant]
     Route: 065
  10. SODIUM CHLORIDE [Concomitant]
     Route: 065

REACTIONS (2)
  - PETIT MAL EPILEPSY [None]
  - TREMOR [None]
